FAERS Safety Report 11136220 (Version 1)
Quarter: 2015Q2

REPORT INFORMATION
  Report Type: Spontaneous
  Country: CH (occurrence: CH)
  Receive Date: 20150526
  Receipt Date: 20150526
  Transmission Date: 20150821
  Serious: Yes (Hospitalization)
  Sender: FDA-Public Use
  Company Number: CH-PFIZER INC-2015174612

PATIENT
  Age: 67 Year
  Sex: Female

DRUGS (18)
  1. MOTILIUM [Concomitant]
     Active Substance: DOMPERIDONE
     Dosage: UNK
  2. SPIRIVA [Concomitant]
     Active Substance: TIOTROPIUM BROMIDE MONOHYDRATE
     Dosage: UNK
  3. NACL [Concomitant]
     Active Substance: SODIUM CHLORIDE
     Dosage: UNK
  4. SYMBICORT [Concomitant]
     Active Substance: BUDESONIDE\FORMOTEROL FUMARATE DIHYDRATE
     Dosage: UNK
  5. HALDOL [Concomitant]
     Active Substance: HALOPERIDOL
     Dosage: UNK
  6. ATORVASTATIN [Concomitant]
     Active Substance: ATORVASTATIN
     Dosage: UNK
  7. PERENTEROL [Concomitant]
     Active Substance: SACCHAROMYCES CEREVISIAE
     Dosage: UNK
  8. ASPIRIN CARDIO [Interacting]
     Active Substance: ASPIRIN
     Indication: CORONARY ARTERY DISEASE
     Dosage: 100 MG, 1X/DAY
     Route: 048
     Dates: end: 201410
  9. ACIDUM FOLICUM [Concomitant]
     Active Substance: FOLIC ACID
     Dosage: UNK
  10. FRAGMIN [Suspect]
     Active Substance: DALTEPARIN SODIUM
     Indication: ACUTE KIDNEY INJURY
     Dosage: 7500 IU, 2X/DAY
     Route: 058
     Dates: end: 201410
  11. NEURODOL [Concomitant]
     Dosage: UNK
  12. PARAGOL [Concomitant]
     Dosage: UNK
  13. RINGERLACTAAT [Concomitant]
     Dosage: UNK
  14. PANTOZOL [Concomitant]
     Active Substance: PANTOPRAZOLE SODIUM
     Dosage: UNK
  15. VI DE3 [Concomitant]
     Dosage: UNK
  16. SIRDALUD [Concomitant]
     Active Substance: TIZANIDINE
     Dosage: UNK
  17. VALVERDE [Concomitant]
     Active Substance: HERBALS
     Dosage: UNK
  18. TARGIN [Concomitant]
     Active Substance: NALOXONE HYDROCHLORIDE\OXYCODONE HYDROCHLORIDE
     Dosage: UNK

REACTIONS (4)
  - Wound haemorrhage [Recovering/Resolving]
  - Drug interaction [Recovering/Resolving]
  - Acute kidney injury [Recovering/Resolving]
  - Haemorrhagic anaemia [Recovering/Resolving]

NARRATIVE: CASE EVENT DATE: 201410
